FAERS Safety Report 22348567 (Version 1)
Quarter: 2023Q2

REPORT INFORMATION
  Report Type: Spontaneous
  Country: US (occurrence: US)
  Receive Date: 20230522
  Receipt Date: 20230522
  Transmission Date: 20230722
  Serious: Yes (Other)
  Sender: FDA-Public Use
  Company Number: US-BAUSCHBL-2023BNL004239

PATIENT
  Sex: Male
  Weight: 72.64 kg

DRUGS (6)
  1. MURO 128 [Suspect]
     Active Substance: SODIUM CHLORIDE
     Indication: Fuchs^ syndrome
     Route: 065
     Dates: start: 2023, end: 2023
  2. MURO 128 [Suspect]
     Active Substance: SODIUM CHLORIDE
     Route: 065
     Dates: start: 2023
  3. BENAZEPRIL [Concomitant]
     Active Substance: BENAZEPRIL HYDROCHLORIDE
     Indication: Product used for unknown indication
  4. FUROSEMIDE [Concomitant]
     Active Substance: FUROSEMIDE
     Indication: Product used for unknown indication
  5. TADALAFIL [Concomitant]
     Active Substance: TADALAFIL
     Indication: Product used for unknown indication
  6. AMLODIPINE [Concomitant]
     Active Substance: AMLODIPINE BESYLATE
     Indication: Product used for unknown indication

REACTIONS (2)
  - Hypotension [Unknown]
  - Inappropriate schedule of product administration [Unknown]
